FAERS Safety Report 10991772 (Version 2)
Quarter: 2015Q2

REPORT INFORMATION
  Report Type: Spontaneous
  Country: US (occurrence: US)
  Receive Date: 20150406
  Receipt Date: 20150420
  Transmission Date: 20150821
  Serious: Yes (Life-Threatening, Hospitalization, Other)
  Sender: FDA-Public Use
  Company Number: US-TARO-2015TAR00273

PATIENT
  Age: 73 Year
  Sex: Female
  Weight: 79.37 kg

DRUGS (4)
  1. LISINOPRIL. [Concomitant]
     Active Substance: LISINOPRIL
  2. WARFARIN SODIUM TABLETS USP 10MG [Suspect]
     Active Substance: WARFARIN SODIUM
     Indication: ATRIAL FIBRILLATION
     Dosage: UNK
     Route: 048
     Dates: end: 20140908
  3. ZOCOR [Concomitant]
     Active Substance: SIMVASTATIN
  4. WARFARIN SODIUM TABLETS USP 5MG [Suspect]
     Active Substance: WARFARIN SODIUM
     Indication: ATRIAL FIBRILLATION
     Dosage: 5 MG, 1X/DAY
     Route: 048
     Dates: start: 2013, end: 20140908

REACTIONS (21)
  - Loss of consciousness [Recovered/Resolved]
  - Depression [Not Recovered/Not Resolved]
  - Vertigo [Not Recovered/Not Resolved]
  - Coagulopathy [Unknown]
  - Hemiparesis [Not Recovered/Not Resolved]
  - Visual impairment [Recovering/Resolving]
  - Asthenia [Unknown]
  - Cerebellar haemorrhage [Recovered/Resolved with Sequelae]
  - Tobacco abuse [Unknown]
  - Hypokalaemia [Unknown]
  - Cerebrovascular accident [Recovered/Resolved with Sequelae]
  - Dizziness [Unknown]
  - International normalised ratio decreased [Recovered/Resolved]
  - Hypophagia [Recovering/Resolving]
  - Vomiting [Recovered/Resolved]
  - Hypothyroidism [Unknown]
  - Hypomagnesaemia [Unknown]
  - Dehydration [Recovering/Resolving]
  - Coronary artery disease [Unknown]
  - Sensory disturbance [Recovered/Resolved]
  - Accelerated hypertension [Recovering/Resolving]

NARRATIVE: CASE EVENT DATE: 201406
